FAERS Safety Report 23146903 (Version 1)
Quarter: 2023Q4

REPORT INFORMATION
  Report Type: Spontaneous
  Country: EC (occurrence: EC)
  Receive Date: 20231106
  Receipt Date: 20231106
  Transmission Date: 20240110
  Serious: Yes (Death, Hospitalization, Other)
  Sender: FDA-Public Use
  Company Number: EC-NOVITIUMPHARMA-2023ECNVP01900

PATIENT
  Age: 2 Year
  Sex: Male
  Weight: 8.6 kg

DRUGS (2)
  1. PREDNISONE [Suspect]
     Active Substance: PREDNISONE
     Indication: Crohn^s disease
  2. MESALAMINE [Concomitant]
     Active Substance: MESALAMINE
     Indication: Crohn^s disease

REACTIONS (2)
  - Histoplasmosis disseminated [Fatal]
  - Tachycardia [Unknown]
